FAERS Safety Report 15113422 (Version 1)
Quarter: 2018Q3

REPORT INFORMATION
  Report Type: Report from Study
  Country: IT (occurrence: IT)
  Receive Date: 20180706
  Receipt Date: 20180706
  Transmission Date: 20181010
  Serious: Yes (Life-Threatening)
  Sender: FDA-Public Use
  Company Number: IT-TEVA-2018-IT-921196

PATIENT
  Age: 86 Year
  Sex: Female

DRUGS (2)
  1. ZEBETA [Suspect]
     Active Substance: BISOPROLOL FUMARATE
     Route: 065
  2. RIVAROXABAN [Concomitant]
     Active Substance: RIVAROXABAN
     Indication: ATRIAL FIBRILLATION
     Route: 065

REACTIONS (6)
  - Vomiting [Recovering/Resolving]
  - Torsade de pointes [Recovering/Resolving]
  - Bradycardia [Recovering/Resolving]
  - Medication error [Recovering/Resolving]
  - Atrioventricular block [Recovering/Resolving]
  - Syncope [Recovering/Resolving]

NARRATIVE: CASE EVENT DATE: 20180501
